FAERS Safety Report 4772078-7 (Version None)
Quarter: 2005Q3

REPORT INFORMATION
  Report Type: 
  Country: None (occurrence: None)
  Receive Date: 20050918
  Receipt Date: 20050629
  Transmission Date: 20060218
  Serious: Yes (Hospitalization)
  Sender: FDA-Public Use
  Company Number: US-MERCK-0507USA00203

PATIENT
  Age: 55 Year
  Sex: Female
  Weight: 68 kg

DRUGS (15)
  1. VIOXX [Suspect]
     Indication: NECK PAIN
     Route: 048
     Dates: start: 20000612, end: 20040901
  2. VIOXX [Suspect]
     Indication: PAIN IN EXTREMITY
     Route: 048
     Dates: start: 20000612, end: 20040901
  3. CARISOPRODOL [Concomitant]
     Route: 065
  4. HYDROCODONE BITARTRATE + ACETAMINOPHEN [Concomitant]
     Route: 065
  5. IBUPROFEN [Concomitant]
     Route: 065
  6. LIPITOR [Concomitant]
     Route: 065
  7. SYNTHROID [Concomitant]
     Route: 065
  8. AMOXICILLIN [Concomitant]
     Route: 065
  9. ACETAMINOPHEN [Concomitant]
     Route: 065
  10. ALBUTEROL [Concomitant]
     Route: 065
  11. AUGMENTIN [Concomitant]
     Route: 065
  12. FUROSEMIDE [Concomitant]
     Route: 065
  13. K-DUR 10 [Concomitant]
     Route: 065
  14. CELEXA [Concomitant]
     Indication: DEPRESSION
     Route: 065
  15. PREMARIN [Concomitant]
     Route: 065

REACTIONS (22)
  - ACUTE MYOCARDIAL INFARCTION [None]
  - AORTIC VALVE INCOMPETENCE [None]
  - ARRHYTHMIA [None]
  - ASTHMA [None]
  - ASTHMA EXERCISE INDUCED [None]
  - BLOOD TRIGLYCERIDES INCREASED [None]
  - CHEST DISCOMFORT [None]
  - CORONARY ARTERY ATHEROSCLEROSIS [None]
  - CORONARY ARTERY DISEASE [None]
  - CORONARY ARTERY THROMBOSIS [None]
  - DEPRESSION [None]
  - DRUG TOLERANCE DECREASED [None]
  - DYSPEPSIA [None]
  - FATIGUE [None]
  - HEADACHE [None]
  - HYPERLIPIDAEMIA [None]
  - MITRAL VALVE PROLAPSE [None]
  - OEDEMA PERIPHERAL [None]
  - OSTEOARTHRITIS [None]
  - PALPITATIONS [None]
  - SINUS BRADYCARDIA [None]
  - VENTRICULAR HYPOKINESIA [None]
